FAERS Safety Report 9483596 (Version 2)
Quarter: 2013Q3

REPORT INFORMATION
  Report Type: Spontaneous
  Country: CA (occurrence: CA)
  Receive Date: 20130828
  Receipt Date: 20130828
  Transmission Date: 20140515
  Serious: Yes (Other)
  Sender: FDA-Public Use
  Company Number: CA-AMGEN-KDL272107

PATIENT
  Age: 62 Year
  Sex: Female

DRUGS (6)
  1. ENBREL [Suspect]
     Indication: RHEUMATOID ARTHRITIS
     Dosage: 25 MG, 2 TIMES/WK
     Route: 058
     Dates: start: 20050418
  2. PREDNISONE [Concomitant]
     Dosage: UNK UNK, UNK
  3. FENTANYL [Concomitant]
     Dosage: 50 MG, 2 TIMES/WK
     Route: 062
  4. PHENYTOIN SODIUM [Concomitant]
     Dosage: UNK UNK, UNK
  5. PANTOPRAZOLE [Concomitant]
     Dosage: UNK UNK, UNK
  6. ANTIHYPERTENSIVE MEDICATION NOS [Concomitant]

REACTIONS (6)
  - Breast cancer [Not Recovered/Not Resolved]
  - Nervousness [Unknown]
  - Fatigue [Unknown]
  - Rheumatoid arthritis [Unknown]
  - Haemoglobin decreased [Unknown]
  - Fatigue [Unknown]
